FAERS Safety Report 14302309 (Version 1)
Quarter: 2017Q4

REPORT INFORMATION
  Report Type: Spontaneous
  Country: US (occurrence: US)
  Receive Date: 20171219
  Receipt Date: 20171219
  Transmission Date: 20180321
  Serious: Yes (Other)
  Sender: FDA-Public Use
  Company Number: US-SUPERNUS PHARMACEUTICALS, INC.-2017SUP00244

PATIENT
  Age: 53 Year
  Sex: Male
  Weight: 131.29 kg

DRUGS (5)
  1. UNSPECIFIED EYE DROPS [Suspect]
     Active Substance: UNSPECIFIED INGREDIENT
     Indication: ANGLE CLOSURE GLAUCOMA
     Route: 047
  2. TROKENDI XR [Suspect]
     Active Substance: TOPIRAMATE
     Indication: HEADACHE
     Dosage: 25 MG, 1X/DAY
     Route: 048
     Dates: start: 20170806, end: 20170812
  3. TROKENDI XR [Suspect]
     Active Substance: TOPIRAMATE
     Indication: WEIGHT DECREASED
  4. TROKENDI XR [Suspect]
     Active Substance: TOPIRAMATE
     Indication: HEADACHE
     Dosage: 50 MG, 1X/DAY
     Route: 048
     Dates: start: 20170813, end: 20170814
  5. TROKENDI XR [Suspect]
     Active Substance: TOPIRAMATE
     Indication: WEIGHT DECREASED

REACTIONS (5)
  - Cerebral disorder [Recovered/Resolved]
  - Angle closure glaucoma [Recovered/Resolved]
  - Headache [Recovered/Resolved]
  - Off label use [Recovered/Resolved]
  - Alanine aminotransferase increased [Recovered/Resolved]

NARRATIVE: CASE EVENT DATE: 201708
